FAERS Safety Report 12281246 (Version 2)
Quarter: 2016Q2

REPORT INFORMATION
  Report Type: Report from Study
  Country: EC (occurrence: EC)
  Receive Date: 20160419
  Receipt Date: 20160504
  Transmission Date: 20160815
  Serious: Yes (Hospitalization, Other)
  Sender: FDA-Public Use
  Company Number: PHHY2015EC084488

PATIENT
  Age: 9 Year
  Sex: Female
  Weight: 27.4 kg

DRUGS (9)
  1. AMOXICILLIN. [Concomitant]
     Active Substance: AMOXICILLIN
     Indication: BONE PAIN
     Dosage: (EVERY 8 HS 3 DAYS A WEEK)
     Route: 048
     Dates: start: 20160407
  2. EXJADE [Suspect]
     Active Substance: DEFERASIROX
     Dosage: 750 MG, QD
     Route: 048
     Dates: start: 20151221
  3. VITAMIN B COMPLEX [Concomitant]
     Active Substance: CYANOCOBALAMIN\DEXPANTHENOL\NIACINAMIDE\PYRIDOXINE HYDROCHLORIDE\RIBOFLAVIN 5^-PHOSPHATE SODIUM\THIAMINE HYDROCHLORIDE\VITAMIN B COMPLEX
     Indication: SICKLE CELL ANAEMIA
     Dosage: 5 ML, UNK
     Route: 065
  4. EXJADE [Suspect]
     Active Substance: DEFERASIROX
     Indication: SICKLE CELL ANAEMIA
     Dosage: 500 MG, QD
     Route: 048
     Dates: start: 20150416, end: 20151220
  5. AMOXICILLIN. [Concomitant]
     Active Substance: AMOXICILLIN
     Indication: SICKLE CELL ANAEMIA
     Dosage: ONE EVERY 8 HOURS ON MONDAYS, WEDNESDAYS AND FRIDAY.
     Route: 065
  6. ZINC SULFATE [Concomitant]
     Active Substance: ZINC SULFATE\ZINC SULFATE ANHYDROUS
     Indication: SICKLE CELL ANAEMIA
     Dosage: SUSPENSION
     Route: 065
  7. FOLIC ACID. [Concomitant]
     Active Substance: FOLIC ACID
     Indication: BONE PAIN
     Dosage: 1 DF, QD
     Route: 048
     Dates: start: 20160407
  8. FOLIC ACID. [Concomitant]
     Active Substance: FOLIC ACID
     Indication: SICKLE CELL ANAEMIA
     Dosage: UNK
     Route: 065
  9. VITAMIN B COMPLEX [Concomitant]
     Active Substance: CYANOCOBALAMIN\DEXPANTHENOL\NIACINAMIDE\PYRIDOXINE HYDROCHLORIDE\RIBOFLAVIN 5^-PHOSPHATE SODIUM\THIAMINE HYDROCHLORIDE\VITAMIN B COMPLEX
     Indication: BONE PAIN
     Dosage: 1 DF, QD
     Route: 048
     Dates: start: 20160407

REACTIONS (7)
  - Cholelithiasis [Unknown]
  - Bone pain [Recovered/Resolved]
  - Infection [Recovered/Resolved]
  - Sickle cell anaemia with crisis [Recovered/Resolved]
  - Pain in extremity [Unknown]
  - Pain [Recovered/Resolved]
  - Nephrolithiasis [Unknown]

NARRATIVE: CASE EVENT DATE: 20160407
